FAERS Safety Report 11111517 (Version 2)
Quarter: 2015Q2

REPORT INFORMATION
  Report Type: Spontaneous
  Country: DE (occurrence: DE)
  Receive Date: 20150513
  Receipt Date: 20150601
  Transmission Date: 20150821
  Serious: Yes (Life-Threatening, Hospitalization, Other)
  Sender: FDA-Public Use
  Company Number: DE-ABBVIE-15P-062-1386749-00

PATIENT
  Age: 46 Year
  Sex: Male
  Weight: 90 kg

DRUGS (8)
  1. LANSOPRAZOLE (LANSOPRAZOL) [Concomitant]
     Indication: PRODUCT USED FOR UNKNOWN INDICATION
  2. DOCITON [Concomitant]
     Active Substance: PROPRANOLOL HYDROCHLORIDE
     Indication: PRODUCT USED FOR UNKNOWN INDICATION
  3. RIBAVIRIN. [Suspect]
     Active Substance: RIBAVIRIN
     Indication: CHRONIC HEPATITIS C
     Route: 048
     Dates: start: 20150228, end: 20150309
  4. MESALAZIN [Concomitant]
     Active Substance: MESALAMINE
     Indication: PRODUCT USED FOR UNKNOWN INDICATION
  5. VELMETIA [Concomitant]
     Active Substance: METFORMIN\SITAGLIPTIN
     Indication: PRODUCT USED FOR UNKNOWN INDICATION
     Dosage: 50/1000MG
  6. VIEKIRAX [Suspect]
     Active Substance: OMBITASVIR\PARITAPREVIR\RITONAVIR
     Indication: CHRONIC HEPATITIS C
     Route: 048
     Dates: start: 20150228, end: 20150309
  7. ZANTAC [Concomitant]
     Active Substance: RANITIDINE HYDROCHLORIDE
     Indication: PRODUCT USED FOR UNKNOWN INDICATION
  8. EXVIERA [Suspect]
     Active Substance: DASABUVIR
     Indication: CHRONIC HEPATITIS C
     Dosage: 25/150/100MG
     Route: 048
     Dates: start: 20150228, end: 20150309

REACTIONS (10)
  - Acute kidney injury [Unknown]
  - Hepatic cirrhosis [Unknown]
  - Hepatic failure [Recovered/Resolved with Sequelae]
  - Jaundice [Recovering/Resolving]
  - Ascites [Unknown]
  - Portal hypertension [Unknown]
  - Pulmonary congestion [Unknown]
  - Hepatorenal syndrome [Recovering/Resolving]
  - Hyperbilirubinaemia [Unknown]
  - Hepatosplenomegaly [Unknown]

NARRATIVE: CASE EVENT DATE: 201503
